APPROVED DRUG PRODUCT: TOLVAPTAN
Active Ingredient: TOLVAPTAN
Strength: 30MG
Dosage Form/Route: TABLET;ORAL
Application: A211891 | Product #001 | TE Code: AB1
Applicant: ALKEM LABORATORIES LTD
Approved: May 19, 2020 | RLD: No | RS: No | Type: RX